FAERS Safety Report 24593597 (Version 2)
Quarter: 2025Q2

REPORT INFORMATION
  Report Type: Report from Study
  Country: JP (occurrence: JP)
  Receive Date: 20241108
  Receipt Date: 20250504
  Transmission Date: 20250717
  Serious: Yes (Hospitalization, Other)
  Sender: GENMAB
  Company Number: JP-GENMAB-2024-03999

PATIENT
  Age: 72 Year
  Sex: Female
  Weight: 38.3 kg

DRUGS (4)
  1. EPKINLY [Suspect]
     Active Substance: EPCORITAMAB-BYSP
     Indication: Diffuse large B-cell lymphoma refractory
     Route: 058
     Dates: start: 20240117, end: 20240117
  2. EPKINLY [Suspect]
     Active Substance: EPCORITAMAB-BYSP
     Route: 058
     Dates: start: 20240124, end: 20240124
  3. EPKINLY [Suspect]
     Active Substance: EPCORITAMAB-BYSP
     Route: 058
     Dates: start: 20240131, end: 20240207
  4. PREDNISOLONE [Suspect]
     Active Substance: PREDNISOLONE
     Indication: Prophylaxis
     Dates: start: 202401, end: 202402

REACTIONS (7)
  - Klebsiella bacteraemia [Unknown]
  - Diffuse large B-cell lymphoma refractory [Unknown]
  - Abdominal pain [Unknown]
  - Pneumonia [Recovered/Resolved]
  - Lymphadenopathy [Unknown]
  - Decreased immune responsiveness [Unknown]
  - Infection [Unknown]

NARRATIVE: CASE EVENT DATE: 20240101
